FAERS Safety Report 13258081 (Version 1)
Quarter: 2017Q1

REPORT INFORMATION
  Report Type: Spontaneous
  Country: US (occurrence: US)
  Receive Date: 20170221
  Receipt Date: 20170221
  Transmission Date: 20170428
  Serious: Yes (Other)
  Sender: FDA-Public Use
  Company Number: US-DSJP-DSU-2017-105262

PATIENT

DRUGS (2)
  1. OLMESARTAN HCT AG [Suspect]
     Active Substance: HYDROCHLOROTHIAZIDE\OLMESARTAN MEDOXOMIL
     Indication: HYPERTENSION
     Dosage: 40/12.5 MG, QD
     Dates: start: 20170211, end: 20170211
  2. OLMESARTAN HCT AG [Suspect]
     Active Substance: HYDROCHLOROTHIAZIDE\OLMESARTAN MEDOXOMIL
     Dosage: 1/2 (40/12.5 MG), QD (IN THE MORNING)
     Dates: start: 20170212, end: 20170212

REACTIONS (7)
  - Headache [Unknown]
  - Dizziness [Unknown]
  - Malaise [Unknown]
  - Myocardial infarction [Unknown]
  - Hypertension [Unknown]
  - Drug administration error [Recovered/Resolved]
  - Nausea [Unknown]

NARRATIVE: CASE EVENT DATE: 20170212
